APPROVED DRUG PRODUCT: RISPERIDONE
Active Ingredient: RISPERIDONE
Strength: 2MG
Dosage Form/Route: TABLET, ORALLY DISINTEGRATING;ORAL
Application: A078116 | Product #003 | TE Code: AB
Applicant: SANDOZ INC
Approved: Dec 22, 2009 | RLD: No | RS: No | Type: RX